FAERS Safety Report 6141821-7 (Version None)
Quarter: 2009Q2

REPORT INFORMATION
  Report Type: 
  Country: None (occurrence: None)
  Receive Date: 20090402
  Receipt Date: 20090326
  Transmission Date: 20091009
  Serious: Yes (Hospitalization, Other)
  Sender: FDA-Public Use
  Company Number: US-AVENTIS-200912489US

PATIENT
  Sex: Male

DRUGS (5)
  1. LANTUS [Suspect]
     Route: 058
     Dates: start: 20090301
  2. LANTUS [Suspect]
     Dosage: DOSE: UNK
     Route: 058
     Dates: end: 20090301
  3. OPTICLIK (INSULIN INJECTION PEN) [Suspect]
     Dates: start: 20090301
  4. OPTICLIK (INSULIN INJECTION PEN) [Suspect]
     Dates: end: 20090301
  5. UNKNOWN DRUG [Concomitant]
     Dosage: DOSE: UNK

REACTIONS (3)
  - CONDITION AGGRAVATED [None]
  - MYOCARDIAL INFARCTION [None]
  - RENAL FAILURE [None]
